FAERS Safety Report 4816234-8 (Version None)
Quarter: 2005Q4

REPORT INFORMATION
  Report Type: 
  Country: None (occurrence: None)
  Receive Date: 20051028
  Receipt Date: 20051019
  Transmission Date: 20060501
  Serious: Yes (Disabling)
  Sender: FDA-Public Use
  Company Number: 2005-08-0795

PATIENT
  Age: 65 Year
  Sex: Male
  Weight: 63 kg

DRUGS (17)
  1. PEG-INTRON [Suspect]
     Indication: HEPATITIS C
     Dosage: SEE IMAGE
     Route: 058
     Dates: start: 20041218, end: 20050226
  2. PEG-INTRON [Suspect]
     Indication: HEPATITIS C
     Dosage: SEE IMAGE
     Route: 058
     Dates: start: 20050423, end: 20050514
  3. PEG-INTRON [Suspect]
     Indication: HEPATITIS C
     Dosage: SEE IMAGE
     Route: 058
     Dates: start: 20050521, end: 20050721
  4. PEG-INTRON [Suspect]
     Indication: HEPATITIS C
     Dosage: SEE IMAGE
     Route: 058
     Dates: start: 20041218, end: 20050810
  5. PEG-INTRON [Suspect]
     Indication: HEPATITIS C
     Dosage: SEE IMAGE
     Route: 058
     Dates: start: 20050727, end: 20050810
  6. REBETOL [Suspect]
     Indication: HEPATITIS C
     Dosage: SEE IMAGE
     Route: 048
     Dates: start: 20040902, end: 20041027
  7. REBETOL [Suspect]
     Indication: HEPATITIS C
     Dosage: SEE IMAGE
     Route: 048
     Dates: start: 20041105, end: 20041208
  8. REBETOL [Suspect]
     Indication: HEPATITIS C
     Dosage: SEE IMAGE
     Route: 048
     Dates: start: 20041218, end: 20050218
  9. REBETOL [Suspect]
     Indication: HEPATITIS C
     Dosage: SEE IMAGE
     Route: 048
     Dates: start: 20050219, end: 20050226
  10. REBETOL [Suspect]
     Indication: HEPATITIS C
     Dosage: SEE IMAGE
     Route: 048
     Dates: start: 20050423, end: 20050712
  11. REBETOL [Suspect]
     Indication: HEPATITIS C
     Dosage: SEE IMAGE
     Route: 048
     Dates: start: 20040902, end: 20050810
  12. REBETOL [Suspect]
     Indication: HEPATITIS C
     Dosage: SEE IMAGE
     Route: 048
     Dates: start: 20050713, end: 20050810
  13. INTRON A [Suspect]
     Indication: HEPATITIS C
     Dosage: 10-6MU QD-TIW SUBCUTANEOUS
     Route: 058
     Dates: start: 20040902, end: 20040914
  14. INTRON A [Suspect]
     Indication: HEPATITIS C
     Dosage: 10-6MU QD-TIW SUBCUTANEOUS
     Route: 058
     Dates: start: 20040916, end: 20041025
  15. INTRON A [Suspect]
     Indication: HEPATITIS C
     Dosage: 10-6MU QD-TIW SUBCUTANEOUS
     Route: 058
     Dates: start: 20041027, end: 20041027
  16. INTRON A [Suspect]
     Indication: HEPATITIS C
     Dosage: 10-6MU QD-TIW SUBCUTANEOUS
     Route: 058
     Dates: start: 20040902, end: 20041208
  17. INTRON A [Suspect]
     Indication: HEPATITIS C
     Dosage: 10-6MU QD-TIW SUBCUTANEOUS
     Route: 058
     Dates: start: 20041105, end: 20041208

REACTIONS (5)
  - BLOOD PRESSURE INCREASED [None]
  - FALL [None]
  - HEMIPLEGIA [None]
  - PYREXIA [None]
  - THALAMUS HAEMORRHAGE [None]
